FAERS Safety Report 9637486 (Version 1)
Quarter: 2013Q4

REPORT INFORMATION
  Report Type: Spontaneous
  Country: US (occurrence: None)
  Receive Date: 20131018
  Receipt Date: 20131018
  Transmission Date: 20140711
  Serious: Yes (Hospitalization, Disabling, Other)
  Sender: FDA-Public Use
  Company Number: ACO_20803_2010

PATIENT
  Age: 58 Year
  Sex: Male
  Weight: 99.8 kg

DRUGS (12)
  1. AMPYRA [Suspect]
     Indication: GAIT DISTURBANCE
     Route: 048
     Dates: start: 2010, end: 201202
  2. ADVIL [Suspect]
     Indication: PRODUCT USED FOR UNKNOWN INDICATION
  3. MOTRIN [Suspect]
     Indication: PRODUCT USED FOR UNKNOWN INDICATION
  4. COPAXONE [Concomitant]
  5. CYMBALTA (DULOXETINE HYDROCHLORIDE) [Concomitant]
  6. NORVASC (AMLODIPINE BESILATE) [Concomitant]
  7. PREVACID (LANSOPRAZOLE) [Concomitant]
  8. ASPIRIN (ACETYLSALICYLIC ACID) [Concomitant]
  9. VITAMIN D (COLECALCIFEROL) [Concomitant]
  10. LISINOPRIL (LISINOPRIL) [Concomitant]
  11. HYDROCHLOROTHIAZIDE (HYDROCHLOROTHIAZIDE) [Concomitant]
  12. METOPROLOL (METOPROLOL TARTRATE) [Concomitant]

REACTIONS (8)
  - Renal failure chronic [None]
  - Renal failure acute [None]
  - Haemorrhagic stroke [None]
  - Renal failure acute [None]
  - Cardiac valve replacement complication [None]
  - Sensation of heaviness [None]
  - Gait disturbance [None]
  - Inappropriate schedule of drug administration [None]
